FAERS Safety Report 4284211-4 (Version None)
Quarter: 2004Q1

REPORT INFORMATION
  Report Type: 
  Country: None (occurrence: None)
  Receive Date: 20040130
  Receipt Date: 20040120
  Transmission Date: 20041129
  Serious: Yes (Hospitalization)
  Sender: FDA-Public Use
  Company Number: BE-JNJFOC-20040103759

PATIENT
  Age: 34 Year
  Sex: Female
  Weight: 51 kg

DRUGS (2)
  1. REMICADE [Suspect]
     Indication: CROHN'S DISEASE
     Dosage: 5 MG/KG, 1 IN 1 DAY, INTRAVENOUS
     Route: 042
     Dates: start: 20031009, end: 20031009
  2. REMICADE [Suspect]
     Indication: CROHN'S DISEASE
     Dosage: 5 MG/KG, 1 IN 1 DAY, INTRAVENOUS
     Route: 042
     Dates: start: 20031021, end: 20031021

REACTIONS (6)
  - C-REACTIVE PROTEIN INCREASED [None]
  - CYSTITIS [None]
  - FISTULA [None]
  - POST PROCEDURAL COMPLICATION [None]
  - PYREXIA [None]
  - SECRETION DISCHARGE [None]
